FAERS Safety Report 4869170-5 (Version None)
Quarter: 2005Q4

REPORT INFORMATION
  Report Type: 
  Country: None (occurrence: None)
  Receive Date: 20051228
  Receipt Date: 20051228
  Transmission Date: 20060501
  Serious: Yes (Other)
  Sender: FDA-Public Use
  Company Number: None

PATIENT
  Age: 52 Year
  Sex: Female
  Weight: 56.6996 kg

DRUGS (2)
  1. TUSSIN CF BROOKS BRAND [Suspect]
     Indication: NASOPHARYNGITIS
  2. TUSSIN CF BROOKS BRAND [Suspect]
     Indication: RESPIRATORY TRACT CONGESTION

REACTIONS (5)
  - AGITATION [None]
  - DISTURBANCE IN ATTENTION [None]
  - EMOTIONAL DISORDER [None]
  - FEELING ABNORMAL [None]
  - MEDICATION ERROR [None]
